FAERS Safety Report 19511456 (Version 1)
Quarter: 2021Q3

REPORT INFORMATION
  Report Type: Spontaneous
  Country: US (occurrence: US)
  Receive Date: 20210709
  Receipt Date: 20210709
  Transmission Date: 20211014
  Serious: No
  Sender: FDA-Public Use
  Company Number: None

PATIENT
  Age: 71 Year
  Sex: Female
  Weight: 62.1 kg

DRUGS (7)
  1. FEMARA [Concomitant]
     Active Substance: LETROZOLE
  2. VITAMIN D (ERGOCALCIFEROL) [Concomitant]
     Active Substance: ERGOCALCIFEROL
  3. ASPIRIN 81 [Concomitant]
     Active Substance: ASPIRIN
  4. AMLODIPINE BESYLATE. [Concomitant]
     Active Substance: AMLODIPINE BESYLATE
  5. CALCIUM CARBONATE. [Concomitant]
     Active Substance: CALCIUM CARBONATE
  6. IBUPROFEN. [Concomitant]
     Active Substance: IBUPROFEN
  7. IBRANCE [Suspect]
     Active Substance: PALBOCICLIB
     Indication: BREAST CANCER
     Route: 048
     Dates: start: 20210524

REACTIONS (2)
  - Renal impairment [None]
  - White blood cell count decreased [None]

NARRATIVE: CASE EVENT DATE: 20210524
